FAERS Safety Report 6430889-6 (Version None)
Quarter: 2009Q4

REPORT INFORMATION
  Report Type: 
  Country: None (occurrence: None)
  Receive Date: 20091106
  Receipt Date: 20091027
  Transmission Date: 20100525
  Serious: Yes (Life-Threatening, Other)
  Sender: FDA-Public Use
  Company Number: JP-PFIZER INC-2009258508

PATIENT
  Age: 25 Year
  Sex: Female

DRUGS (1)
  1. SOLU-CORTEF [Suspect]
     Indication: ASTHMA
     Route: 042

REACTIONS (1)
  - SHOCK [None]
